FAERS Safety Report 9654726 (Version 1)
Quarter: 2013Q4

REPORT INFORMATION
  Report Type: Spontaneous
  Country: DE (occurrence: None)
  Receive Date: 20131015
  Receipt Date: 20131015
  Transmission Date: 20140711
  Serious: Yes (Death)
  Sender: FDA-Public Use
  Company Number: 2013038282

PATIENT
  Age: 64 Year
  Sex: Male

DRUGS (4)
  1. PRIVIGEN [Suspect]
     Indication: B-CELL LYMPHOMA
     Dosage: 10 G TOTAL, INFUSION RATE MINIMUM 0.47 ML/MIN MAXIMUM 3.13 ML/MON,
     Route: 042
     Dates: start: 20130323, end: 20130323
  2. ANTIFUNGALS (ANTIFUNGALS) [Concomitant]
  3. ANTIBIOTICS (ANTIBIOTICS) [Concomitant]
  4. ANTIVIRALS NOS (ANTIVIRALS NOS) [Concomitant]

REACTIONS (4)
  - Serratia sepsis [None]
  - Pneumonia [None]
  - Off label use [None]
  - Treatment failure [None]
